FAERS Safety Report 9323447 (Version 1)
Quarter: 2013Q2

REPORT INFORMATION
  Report Type: Spontaneous
  Country: US (occurrence: US)
  Receive Date: 20130603
  Receipt Date: 20130603
  Transmission Date: 20140414
  Serious: No
  Sender: FDA-Public Use
  Company Number: US-PFIZER INC-2013165666

PATIENT
  Age: 90 Year
  Sex: Female
  Weight: 65.8 kg

DRUGS (4)
  1. FLECTOR [Suspect]
     Indication: OSTEOPOROSIS
     Dosage: UNK, 2X/DAY
     Route: 061
  2. DIOVAN (VALSARTAN) [Concomitant]
     Indication: HYPERTENSION
     Dosage: UNK
  3. ALLOPURINOL [Concomitant]
     Indication: ARTHRITIS
     Dosage: UNK
  4. ZETIA [Concomitant]
     Dosage: UNK

REACTIONS (3)
  - Drug ineffective [Unknown]
  - Urinary incontinence [Unknown]
  - Off label use [Unknown]
